FAERS Safety Report 12782235 (Version 1)
Quarter: 2016Q3

REPORT INFORMATION
  Report Type: Spontaneous
  Country: US (occurrence: US)
  Receive Date: 20160927
  Receipt Date: 20160927
  Transmission Date: 20161109
  Serious: Yes (Other)
  Sender: FDA-Public Use
  Company Number: US-BEH-200609982

PATIENT
  Age: 25 Year
  Sex: Female
  Weight: 96.62 kg

DRUGS (4)
  1. MOTRIN [Concomitant]
     Active Substance: IBUPROFEN
     Dosage: DAILY DOSE QUANTITY: 600, DAILY DOSE UNIT: MG
     Dates: start: 20060317
  2. RHOPHYLAC [Suspect]
     Active Substance: HUMAN RHO(D) IMMUNE GLOBULIN
     Indication: FOETAL-MATERNAL HAEMORRHAGE
     Route: 042
     Dates: start: 20060318, end: 20060318
  3. SENOKOT-S [Concomitant]
     Active Substance: DOCUSATE SODIUM\SENNOSIDES
     Route: 048
     Dates: start: 20060317
  4. PERCOCET [Concomitant]
     Active Substance: ACETAMINOPHEN\OXYCODONE HYDROCHLORIDE
     Dosage: DAILY DOSE QUANTITY: 2600, DAILY DOSE UNIT: MG
     Route: 048
     Dates: start: 20060317, end: 20060318

REACTIONS (3)
  - Rhesus antibodies [Not Recovered/Not Resolved]
  - Chills [Recovered/Resolved]
  - Abortion spontaneous [Recovered/Resolved]

NARRATIVE: CASE EVENT DATE: 20060318
